FAERS Safety Report 6084522-6 (Version None)
Quarter: 2009Q1

REPORT INFORMATION
  Report Type: 
  Country: None (occurrence: None)
  Receive Date: 20090219
  Receipt Date: 20090116
  Transmission Date: 20090719
  Serious: Yes (Other)
  Sender: FDA-Public Use
  Company Number: US-PFIZER INC-2009151294

PATIENT
  Sex: Female
  Weight: 83.9 kg

DRUGS (9)
  1. CHANTIX [Suspect]
     Indication: SMOKING CESSATION THERAPY
     Dosage: 1 MG, 2X/DAY
     Dates: start: 20081201
  2. VICODIN [Concomitant]
     Dosage: UNK
  3. GABAPENTIN [Concomitant]
     Dosage: 600 MG, 3X/DAY
  4. CYCLOBENZAPRINE [Concomitant]
     Dosage: UNK
  5. SULINDAC [Concomitant]
     Dosage: 200 MG, 2X/DAY
  6. TRAZODONE [Concomitant]
     Dosage: 150 MG, AS NEEDED
  7. CYMBALTA [Concomitant]
     Indication: NEURALGIA
     Dosage: UNK
  8. VITAMIN B NOS [Concomitant]
     Dosage: UNK
  9. LISURIDE [Concomitant]
     Indication: RHEUMATOID ARTHRITIS
     Dosage: UNK

REACTIONS (20)
  - ABNORMAL BEHAVIOUR [None]
  - ABNORMAL DREAMS [None]
  - ANXIETY [None]
  - CONFUSIONAL STATE [None]
  - DEAFNESS [None]
  - DRUG DOSE OMISSION [None]
  - DRUG INEFFECTIVE [None]
  - FEELING ABNORMAL [None]
  - INSOMNIA [None]
  - MUSCLE SPASMS [None]
  - NAUSEA [None]
  - RESPIRATORY DISTRESS [None]
  - SLEEP DISORDER [None]
  - SLEEP TALKING [None]
  - SOMNAMBULISM [None]
  - SOMNOLENCE [None]
  - STRESS [None]
  - THIRST [None]
  - TOBACCO USER [None]
  - WEIGHT INCREASED [None]
